FAERS Safety Report 24950257 (Version 2)
Quarter: 2025Q1

REPORT INFORMATION
  Report Type: Report from Study
  Country: JP (occurrence: JP)
  Receive Date: 20250210
  Receipt Date: 20250312
  Transmission Date: 20250409
  Serious: Yes (Life-Threatening, Hospitalization, Other)
  Sender: ASTELLAS
  Company Number: JP-CMIC-GS-JP-417-5642-00645-002-00645

PATIENT
  Age: 63 Year
  Sex: Female
  Weight: 54.6 kg

DRUGS (6)
  1. AMPHOTERICIN B [Suspect]
     Active Substance: AMPHOTERICIN B
     Indication: Pulmonary mucormycosis
     Route: 065
     Dates: start: 20220924
  2. AMPHOTERICIN B [Suspect]
     Active Substance: AMPHOTERICIN B
     Route: 065
     Dates: start: 20220927
  3. AMPHOTERICIN B [Suspect]
     Active Substance: AMPHOTERICIN B
     Route: 065
     Dates: start: 20221011, end: 20221018
  4. AMPHOTERICIN B [Suspect]
     Active Substance: AMPHOTERICIN B
     Route: 065
     Dates: start: 20221019, end: 202210
  5. FILGOTINIB [Suspect]
     Active Substance: FILGOTINIB
     Indication: Rheumatoid arthritis
     Dosage: 200 MG, QD
     Route: 048
     Dates: start: 20210821, end: 20220729
  6. FILGOTINIB [Suspect]
     Active Substance: FILGOTINIB
     Dosage: 200 MG, QD
     Route: 048
     Dates: start: 20220806, end: 20220916

REACTIONS (6)
  - Renal disorder [Recovered/Resolved]
  - Pneumonia bacterial [Recovered/Resolved]
  - Immunodeficiency common variable [Unknown]
  - Pulmonary mucormycosis [Not Recovered/Not Resolved]
  - Pleurisy [Recovered/Resolved]
  - Nausea [Recovered/Resolved]

NARRATIVE: CASE EVENT DATE: 20220728
